FAERS Safety Report 5338745-1 (Version None)
Quarter: 2007Q2

REPORT INFORMATION
  Report Type: 
  Country: None (occurrence: None)
  Receive Date: 20070322
  Receipt Date: 20060622
  Transmission Date: 20071010
  Serious: Yes (Other)
  Sender: FDA-Public Use
  Company Number: 200611317BCC

PATIENT
  Age: 78 Year
  Sex: Male

DRUGS (7)
  1. ALEVE [Suspect]
     Indication: ARTHRALGIA
     Dosage: SEE IMAGE
     Route: 048
     Dates: start: 20060201, end: 20060313
  2. ALEVE [Suspect]
     Indication: ARTHRALGIA
     Dosage: SEE IMAGE
     Route: 048
     Dates: start: 20050101
  3. TYLENOL [Suspect]
     Indication: PAIN
  4. PEPCID AC [Suspect]
  5. ZANTAC [Suspect]
     Dosage: OM
  6. WARFARIN SODIUM [Concomitant]
  7. COZAAR [Concomitant]

REACTIONS (6)
  - ABDOMINAL PAIN UPPER [None]
  - DIARRHOEA [None]
  - DUODENAL ULCER [None]
  - ENTERITIS INFECTIOUS [None]
  - HIATUS HERNIA [None]
  - STOMACH DISCOMFORT [None]
